FAERS Safety Report 5087449-1 (Version None)
Quarter: 2006Q3

REPORT INFORMATION
  Report Type: 
  Country: None (occurrence: None)
  Receive Date: 20060822
  Receipt Date: 20060822
  Transmission Date: 20061208
  Serious: No
  Sender: FDA-Public Use
  Company Number: None

PATIENT
  Age: 61 Year
  Sex: Male
  Weight: 112.4921 kg

DRUGS (1)
  1. BYETTA [Suspect]
     Indication: BLOOD GLUCOSE INCREASED
     Dosage: 5MCG  2 X DAY
     Dates: start: 20060209, end: 20060215

REACTIONS (1)
  - BLINDNESS UNILATERAL [None]
